FAERS Safety Report 7941799-7 (Version None)
Quarter: 2011Q4

REPORT INFORMATION
  Report Type: 
  Country: None (occurrence: None)
  Receive Date: 20111128
  Receipt Date: 20111128
  Transmission Date: 20120403
  Serious: Yes (Other)
  Sender: FDA-Public Use
  Company Number: None

PATIENT
  Age: 44 Year
  Sex: Female
  Weight: 74.842 kg

DRUGS (1)
  1. MS CONTIN [Suspect]
     Indication: ARTHRALGIA
     Dosage: 30 MG Q 12 H.
     Route: 048
     Dates: start: 20110701, end: 20111101

REACTIONS (2)
  - PRODUCT SUBSTITUTION ISSUE [None]
  - ARTHRALGIA [None]
